FAERS Safety Report 14216143 (Version 2)
Quarter: 2017Q4

REPORT INFORMATION
  Report Type: Spontaneous
  Country: JP (occurrence: JP)
  Receive Date: 20171122
  Receipt Date: 20171220
  Transmission Date: 20180321
  Serious: Yes (Hospitalization, Other)
  Sender: FDA-Public Use
  Company Number: PHJP2017JP031429

PATIENT
  Age: 38 Year
  Sex: Male
  Weight: 57 kg

DRUGS (15)
  1. ATORVASTATIN [Suspect]
     Active Substance: ATORVASTATIN
     Indication: HYPERCHOLESTEROLAEMIA
     Dosage: 5 MG, UNK
     Route: 065
     Dates: start: 20160726, end: 20161213
  2. NEORAL [Suspect]
     Active Substance: CYCLOSPORINE
     Dosage: 100 MG, QD
     Route: 048
     Dates: start: 20170307, end: 20170418
  3. NEORAL [Suspect]
     Active Substance: CYCLOSPORINE
     Dosage: 100 MG, QD
     Route: 048
     Dates: start: 20160907, end: 20161108
  4. NEORAL [Suspect]
     Active Substance: CYCLOSPORINE
     Indication: GLOMERULONEPHRITIS MEMBRANOUS
     Dosage: 100 MG, QD
     Route: 048
     Dates: start: 20160514, end: 20160607
  5. NEORAL [Suspect]
     Active Substance: CYCLOSPORINE
     Dosage: 130 MG, QD
     Route: 048
     Dates: start: 20160608, end: 20160612
  6. NEORAL [Suspect]
     Active Substance: CYCLOSPORINE
     Dosage: 110 MG, QD
     Route: 048
     Dates: start: 20161109, end: 20170110
  7. PREDONINE [Suspect]
     Active Substance: PREDNISOLONE
     Indication: GLOMERULONEPHRITIS MEMBRANOUS
     Dosage: 10 TO 20 MG, QD
     Route: 048
     Dates: start: 20160514
  8. LIXIANA [Concomitant]
     Active Substance: EDOXABAN TOSYLATE
     Indication: ATRIAL SEPTAL DEFECT
  9. NEORAL [Suspect]
     Active Substance: CYCLOSPORINE
     Dosage: 100 MG, QD
     Route: 048
     Dates: start: 20160613, end: 20160705
  10. NEORAL [Suspect]
     Active Substance: CYCLOSPORINE
     Dosage: 100 MG, QD
     Route: 048
     Dates: start: 20170111, end: 20170124
  11. BAKTAR [Suspect]
     Active Substance: SULFAMETHOXAZOLE\TRIMETHOPRIM
     Indication: PROPHYLAXIS
     Dosage: 1 DF, QD
     Route: 048
     Dates: start: 20160621
  12. NEORAL [Suspect]
     Active Substance: CYCLOSPORINE
     Dosage: 90 MG, QD
     Route: 048
     Dates: start: 20170419, end: 20171003
  13. NEORAL [Suspect]
     Active Substance: CYCLOSPORINE
     Dosage: 120 MG, QD
     Route: 048
     Dates: start: 20160706, end: 20160726
  14. NEORAL [Suspect]
     Active Substance: CYCLOSPORINE
     Dosage: 110 MG, QD
     Route: 048
     Dates: start: 20160727, end: 20160906
  15. LIXIANA [Concomitant]
     Active Substance: EDOXABAN TOSYLATE
     Indication: VENOUS THROMBOSIS LIMB
     Dosage: 30 MG, QD
     Route: 048
     Dates: start: 20160602

REACTIONS (4)
  - Rhabdomyolysis [Recovering/Resolving]
  - Blood creatine phosphokinase increased [Recovered/Resolved]
  - Streptococcal bacteraemia [Recovering/Resolving]
  - Fasciitis [Recovering/Resolving]

NARRATIVE: CASE EVENT DATE: 20160519
